FAERS Safety Report 9767622 (Version 1)
Quarter: 2013Q4

REPORT INFORMATION
  Report Type: Report from Study
  Country: AR (occurrence: AR)
  Receive Date: 20131217
  Receipt Date: 20131217
  Transmission Date: 20140711
  Serious: Yes (Hospitalization, Other)
  Sender: FDA-Public Use
  Company Number: PHHY2013AR147264

PATIENT
  Sex: Male

DRUGS (1)
  1. EXELON [Suspect]
     Indication: COGNITIVE DISORDER
     Dosage: 3 DF/DAY
     Route: 048
     Dates: start: 2002

REACTIONS (11)
  - Anal fistula [Recovering/Resolving]
  - Infection [Recovering/Resolving]
  - Malaise [Recovering/Resolving]
  - Gastrointestinal haemorrhage [Recovering/Resolving]
  - Urinary tract infection [Recovering/Resolving]
  - Gastrointestinal disorder [Recovering/Resolving]
  - General physical health deterioration [Recovering/Resolving]
  - Choking [Recovering/Resolving]
  - Aphagia [Recovering/Resolving]
  - Dysphagia [Recovering/Resolving]
  - Disorientation [Recovering/Resolving]
